FAERS Safety Report 12933784 (Version 2)
Quarter: 2016Q4

REPORT INFORMATION
  Report Type: Spontaneous
  Country: US (occurrence: US)
  Receive Date: 20161111
  Receipt Date: 20161229
  Transmission Date: 20170207
  Serious: No
  Sender: FDA-Public Use
  Company Number: US-PFIZER INC-2016518661

PATIENT
  Age: 62 Year
  Sex: Female
  Weight: 72.56 kg

DRUGS (2)
  1. ZITHROMAX [Suspect]
     Active Substance: AZITHROMYCIN DIHYDRATE
     Indication: RASH
     Dosage: UNK
  2. PREDNISONE. [Suspect]
     Active Substance: PREDNISONE
     Indication: RASH
     Dosage: UNK

REACTIONS (5)
  - Pruritus [Unknown]
  - Dermatitis contact [Unknown]
  - Erythema [Unknown]
  - Rash [Unknown]
  - Drug ineffective [Unknown]
